FAERS Safety Report 23820287 (Version 2)
Quarter: 2024Q3

REPORT INFORMATION
  Report Type: Spontaneous
  Country: GB (occurrence: GB)
  Receive Date: 20240506
  Receipt Date: 20240701
  Transmission Date: 20241017
  Serious: Yes (Other)
  Sender: PFIZER
  Company Number: GB-PFIZER INC-PV202400057382

PATIENT

DRUGS (3)
  1. ELRANATAMAB [Suspect]
     Active Substance: ELRANATAMAB
     Dosage: 1ST DOSE
  2. ELRANATAMAB [Suspect]
     Active Substance: ELRANATAMAB
     Dosage: 2ND DOSE
  3. ALLOPURINOL [Suspect]
     Active Substance: ALLOPURINOL
     Dosage: UNK

REACTIONS (2)
  - Cytokine release syndrome [Recovered/Resolved]
  - Rash pruritic [Recovered/Resolved]
